FAERS Safety Report 13829732 (Version 2)
Quarter: 2017Q3

REPORT INFORMATION
  Report Type: Spontaneous
  Country: AR (occurrence: AR)
  Receive Date: 20170803
  Receipt Date: 20170824
  Transmission Date: 20171127
  Serious: Yes (Hospitalization, Other)
  Sender: FDA-Public Use
  Company Number: AR-ABBVIE-17K-007-2059805-00

PATIENT

DRUGS (1)
  1. HUMIRA [Suspect]
     Active Substance: ADALIMUMAB
     Indication: PSORIASIS
     Route: 058
     Dates: start: 201703

REACTIONS (6)
  - Headache [Unknown]
  - Lymphadenopathy [Unknown]
  - Spleen disorder [Unknown]
  - Extrapulmonary tuberculosis [Recovering/Resolving]
  - Pleural effusion [Unknown]
  - Lymphoproliferative disorder [Unknown]

NARRATIVE: CASE EVENT DATE: 201704
